FAERS Safety Report 8394516-3 (Version None)
Quarter: 2012Q2

REPORT INFORMATION
  Report Type: 
  Country: None (occurrence: None)
  Receive Date: 20120530
  Receipt Date: 20120517
  Transmission Date: 20120825
  Serious: Yes (Hospitalization)
  Sender: FDA-Public Use
  Company Number: JP-ELI_LILLY_AND_COMPANY-JP201112006120

PATIENT
  Age: 59 Year
  Sex: Female

DRUGS (1)
  1. FORTEO [Suspect]
     Dosage: UNK, QD
     Route: 058
     Dates: start: 20111215, end: 20120107

REACTIONS (7)
  - GASTRITIS [None]
  - DECREASED APPETITE [None]
  - UTERINE OPERATION [None]
  - INJECTION SITE ERYTHEMA [None]
  - URTICARIA [None]
  - PALPITATIONS [None]
  - DIARRHOEA [None]
